FAERS Safety Report 4590019-2 (Version None)
Quarter: 2005Q1

REPORT INFORMATION
  Report Type: 
  Country: None (occurrence: None)
  Receive Date: 20050218
  Receipt Date: 20050218
  Transmission Date: 20050727
  Serious: Yes (Life-Threatening, Hospitalization)
  Sender: FDA-Public Use
  Company Number: None

PATIENT
  Age: 59 Year
  Sex: Male
  Weight: 72.5755 kg

DRUGS (1)
  1. ACYCLOVIR SODIUM [Suspect]
     Indication: ENCEPHALITIS HERPES
     Dosage: 750MG  Q8H  INTRAVENOUS
     Route: 042
     Dates: start: 20050131, end: 20050204

REACTIONS (4)
  - MEDICATION CRYSTALS IN URINE [None]
  - OBSTRUCTION [None]
  - RENAL DISORDER [None]
  - URINE OUTPUT DECREASED [None]
